FAERS Safety Report 16948100 (Version 16)
Quarter: 2021Q4

REPORT INFORMATION
  Report Type: Report from Study
  Country: FR (occurrence: FR)
  Receive Date: 20191022
  Receipt Date: 20211221
  Transmission Date: 20220304
  Serious: Yes (Hospitalization)
  Sender: FDA-Public Use
  Company Number: FR-CELGENE-FRA-20191007774

PATIENT
  Age: 81 Year
  Sex: Male
  Weight: 85 kg

DRUGS (30)
  1. ISTODAX [Suspect]
     Active Substance: ROMIDEPSIN
     Indication: Cutaneous T-cell lymphoma
     Route: 041
     Dates: start: 2016
  2. ISTODAX [Suspect]
     Active Substance: ROMIDEPSIN
     Dosage: 14 MILLIGRAM/SQ. METER
     Route: 041
     Dates: start: 20200207
  3. ISTODAX [Suspect]
     Active Substance: ROMIDEPSIN
     Dosage: 14 MILLIGRAM/SQ. METER
     Route: 041
     Dates: start: 20201030, end: 20201106
  4. ISTODAX [Suspect]
     Active Substance: ROMIDEPSIN
     Dosage: 14 MILLIGRAM/SQ. METER
     Route: 041
     Dates: start: 20210430, end: 20210507
  5. ISTODAX [Suspect]
     Active Substance: ROMIDEPSIN
     Dosage: 14 MILLIGRAM/SQ. METER
     Route: 041
     Dates: start: 20210521, end: 20210528
  6. ISTODAX [Suspect]
     Active Substance: ROMIDEPSIN
     Dosage: 14 MILLIGRAM/SQ. METER
     Route: 041
     Dates: start: 20210611, end: 20210618
  7. ISTODAX [Suspect]
     Active Substance: ROMIDEPSIN
     Dosage: 14 MILLIGRAM/SQ. METER
     Route: 041
     Dates: start: 20211126
  8. ELIQUIS [Concomitant]
     Active Substance: APIXABAN
     Indication: Atrial fibrillation
     Dosage: 10 MILLIGRAM
     Route: 065
  9. EPLERENONE [Concomitant]
     Active Substance: EPLERENONE
     Indication: Product used for unknown indication
     Dosage: 25 MILLIGRAM
     Route: 065
  10. BACTRIM [Concomitant]
     Active Substance: SULFAMETHOXAZOLE\TRIMETHOPRIM
     Indication: Product used for unknown indication
     Route: 065
  11. Dexeryl [Concomitant]
     Indication: Product used for unknown indication
     Route: 065
  12. BISOPROLOL [Concomitant]
     Active Substance: BISOPROLOL
     Indication: Atrial fibrillation
     Dosage: 5 MILLIGRAM
     Route: 065
  13. DOLIPRANE [Concomitant]
     Active Substance: ACETAMINOPHEN
     Indication: Pain
     Route: 065
  14. ATARAX [Concomitant]
     Active Substance: HYDROXYZINE HYDROCHLORIDE
     Indication: Product used for unknown indication
     Dosage: 25 MILLIGRAM
     Route: 065
  15. ESOMEPRAZOLE [Concomitant]
     Active Substance: ESOMEPRAZOLE
     Indication: Product used for unknown indication
     Dosage: 40 MILLIGRAM
     Route: 065
  16. DESONIDE [Concomitant]
     Active Substance: DESONIDE
     Indication: Product used for unknown indication
     Route: 065
  17. BETAMETHASONE DIPROPIONATE [Concomitant]
     Active Substance: BETAMETHASONE DIPROPIONATE
     Indication: Product used for unknown indication
     Route: 065
  18. FOLIC ACID [Concomitant]
     Active Substance: FOLIC ACID
     Indication: Product used for unknown indication
     Dosage: 5 MILLIGRAM
     Route: 065
  19. PRIMPERAN [Concomitant]
     Active Substance: METOCLOPRAMIDE HYDROCHLORIDE
     Indication: Product used for unknown indication
     Route: 065
  20. ZOPICLONE [Concomitant]
     Active Substance: ZOPICLONE
     Indication: Product used for unknown indication
     Dosage: 7.5 MILLIGRAM
     Route: 065
  21. LEVOTHYROXINE [Concomitant]
     Active Substance: LEVOTHYROXINE
     Indication: Product used for unknown indication
     Dosage: 75 MICROGRAM
     Route: 065
  22. POTASSIUM CHLORIDE [Concomitant]
     Active Substance: POTASSIUM CHLORIDE
     Indication: Product used for unknown indication
     Dosage: 600 MILLIGRAM
     Route: 065
  23. FUROSEMIDE [Concomitant]
     Active Substance: FUROSEMIDE
     Indication: Atrial fibrillation
     Dosage: 40 MILLIGRAM
     Route: 065
  24. FUROSEMIDE [Concomitant]
     Active Substance: FUROSEMIDE
     Dosage: 40 MILLIGRAM
     Route: 065
  25. CALCIUM CARBONATE [Concomitant]
     Active Substance: CALCIUM CARBONATE
     Indication: Product used for unknown indication
     Dosage: 1 SACHET
     Route: 065
  26. CORDARONE [Concomitant]
     Active Substance: AMIODARONE HYDROCHLORIDE
     Indication: Atrial fibrillation
     Route: 065
  27. ONDANSETRON [Concomitant]
     Active Substance: ONDANSETRON
     Indication: Antiemetic supportive care
     Route: 065
  28. Qeliquis [Concomitant]
     Indication: Product used for unknown indication
     Route: 065
  29. DOXORUBICIN HYDROCHLORIDE [Concomitant]
     Active Substance: DOXORUBICIN HYDROCHLORIDE
     Indication: Product used for unknown indication
     Route: 065
  30. ZOLPIDEM [Concomitant]
     Active Substance: ZOLPIDEM TARTRATE
     Indication: Product used for unknown indication
     Route: 065

REACTIONS (5)
  - Cardiac failure [Recovered/Resolved]
  - Skin disorder [Unknown]
  - Thrombocytopenia [Recovered/Resolved]
  - Cytopenia [Unknown]
  - Cytopenia [Unknown]

NARRATIVE: CASE EVENT DATE: 20190606
